FAERS Safety Report 5499006-3 (Version None)
Quarter: 2007Q4

REPORT INFORMATION
  Report Type: 
  Country: None (occurrence: None)
  Receive Date: 20071026
  Receipt Date: 20070516
  Transmission Date: 20080405
  Serious: No
  Sender: FDA-Public Use
  Company Number: A0651584A

PATIENT
  Age: 81 Year
  Sex: Male

DRUGS (6)
  1. ADVAIR DISKUS 100/50 [Suspect]
     Indication: CHRONIC OBSTRUCTIVE PULMONARY DISEASE
     Dosage: 1PUFF PER DAY
     Route: 055
  2. SPIRIVA [Concomitant]
  3. ALBUTEROL [Concomitant]
  4. SLEEPING PILL [Concomitant]
  5. ALPRAZOLAM [Concomitant]
  6. OXYGEN [Concomitant]

REACTIONS (3)
  - HEADACHE [None]
  - NASAL DRYNESS [None]
  - RHINORRHOEA [None]
